FAERS Safety Report 14204941 (Version 1)
Quarter: 2017Q4

REPORT INFORMATION
  Report Type: Spontaneous
  Country: US (occurrence: US)
  Receive Date: 20171119
  Receipt Date: 20171119
  Transmission Date: 20180321
  Serious: Yes (Other)
  Sender: FDA-Public Use
  Company Number: None

PATIENT
  Age: 60 Year
  Sex: Female
  Weight: 57.6 kg

DRUGS (6)
  1. AMLODIPINE BENAZ [Concomitant]
  2. LEVOFLOXACIN. [Suspect]
     Active Substance: LEVOFLOXACIN
     Indication: LOWER RESPIRATORY TRACT INFECTION
     Dosage: ?          QUANTITY:10 TABLET(S);?
     Route: 048
     Dates: start: 20171107, end: 20171118
  3. ADVAIR HFA [Concomitant]
     Active Substance: FLUTICASONE PROPIONATE\SALMETEROL XINAFOATE
  4. METFORMIN [Concomitant]
     Active Substance: METFORMIN HYDROCHLORIDE
  5. LEVOTHYROXINE. [Concomitant]
     Active Substance: LEVOTHYROXINE
  6. ATORVASTATINE [Concomitant]
     Active Substance: ATORVASTATIN

REACTIONS (6)
  - Lower respiratory tract infection [None]
  - Vomiting [None]
  - Muscle spasms [None]
  - Dysgeusia [None]
  - Condition aggravated [None]
  - Back pain [None]

NARRATIVE: CASE EVENT DATE: 20171109
